FAERS Safety Report 12882045 (Version 2)
Quarter: 2016Q4

REPORT INFORMATION
  Report Type: Report from Study
  Country: US (occurrence: US)
  Receive Date: 20161025
  Receipt Date: 20161027
  Transmission Date: 20170207
  Serious: Yes (Other)
  Sender: FDA-Public Use
  Company Number: US-JNJFOC-20161021621

PATIENT

DRUGS (8)
  1. LORAZEPAM. [Interacting]
     Active Substance: LORAZEPAM
     Indication: PSYCHOMOTOR HYPERACTIVITY
     Route: 065
  2. COCAINE [Suspect]
     Active Substance: COCAINE
     Indication: PSYCHOMOTOR HYPERACTIVITY
     Route: 065
  3. COCAINE [Suspect]
     Active Substance: COCAINE
     Indication: AGGRESSION
     Route: 065
  4. 9-TETRAHYDROCANNABINOL [Suspect]
     Active Substance: DRONABINOL
     Indication: AGGRESSION
     Route: 065
  5. HALOPERIDOL. [Suspect]
     Active Substance: HALOPERIDOL
     Indication: PSYCHOMOTOR HYPERACTIVITY
     Route: 065
  6. 9-TETRAHYDROCANNABINOL [Suspect]
     Active Substance: DRONABINOL
     Indication: PSYCHOMOTOR HYPERACTIVITY
     Route: 065
  7. LORAZEPAM. [Interacting]
     Active Substance: LORAZEPAM
     Indication: AGGRESSION
     Route: 065
  8. HALOPERIDOL. [Suspect]
     Active Substance: HALOPERIDOL
     Indication: AGGRESSION
     Route: 065

REACTIONS (3)
  - Drug interaction [Unknown]
  - Hypoxia [Unknown]
  - Respiratory depression [Unknown]
